FAERS Safety Report 6569268-X (Version None)
Quarter: 2010Q1

REPORT INFORMATION
  Report Type: 
  Country: None (occurrence: None)
  Receive Date: 20100201
  Receipt Date: 20100201
  Transmission Date: 20100710
  Serious: Yes (Hospitalization)
  Sender: FDA-Public Use
  Company Number: None

PATIENT
  Sex: Female
  Weight: 90.6 kg

DRUGS (4)
  1. FLUOROURACIL [Suspect]
     Dosage: 5796 MG
     Dates: end: 20100107
  2. BEVACIZUMAB (RHUMAB VEGF) [Suspect]
     Dosage: 458 MG
     Dates: end: 20100105
  3. CAMPTOSAR [Suspect]
     Dosage: 373 MG
     Dates: end: 20100105
  4. LEUCOVORIN CALCIUM [Suspect]
     Dosage: 828 MG
     Dates: end: 20100105

REACTIONS (7)
  - ABDOMINAL PAIN UPPER [None]
  - CHILLS [None]
  - CONFUSIONAL STATE [None]
  - DEHYDRATION [None]
  - ENTERITIS [None]
  - FATIGUE [None]
  - FEBRILE NEUTROPENIA [None]
